FAERS Safety Report 9235325 (Version 1)
Quarter: 2013Q2

REPORT INFORMATION
  Report Type: Spontaneous
  Country: US (occurrence: US)
  Receive Date: 20130417
  Receipt Date: 20130417
  Transmission Date: 20140414
  Serious: No
  Sender: FDA-Public Use
  Company Number: US-009507513-1304USA005748

PATIENT
  Age: 50 Year
  Sex: Female

DRUGS (4)
  1. JANUVIA [Suspect]
     Indication: TYPE 2 DIABETES MELLITUS
     Dosage: 100 MG, QD
     Route: 048
     Dates: start: 20130401, end: 20130408
  2. JANUVIA [Suspect]
     Dosage: 100 MG, QD
     Route: 048
     Dates: start: 201304
  3. ASPIRIN [Concomitant]
  4. METFORMIN [Concomitant]

REACTIONS (2)
  - Malaise [Not Recovered/Not Resolved]
  - Drug dose omission [Unknown]
